FAERS Safety Report 4732574-5 (Version None)
Quarter: 2005Q3

REPORT INFORMATION
  Report Type: 
  Country: None (occurrence: None)
  Receive Date: 20050801
  Receipt Date: 20050718
  Transmission Date: 20060218
  Serious: Yes (Disabling, Other)
  Sender: FDA-Public Use
  Company Number: 2005100471

PATIENT
  Age: 54 Year
  Sex: Male

DRUGS (1)
  1. LIPITOR [Suspect]
     Indication: ILL-DEFINED DISORDER
     Dosage: 10 MG
     Dates: start: 19980101, end: 20020119

REACTIONS (13)
  - ABNORMAL BEHAVIOUR [None]
  - ASTHENIA [None]
  - BREATHING-RELATED SLEEP DISORDER [None]
  - COGNITIVE DISORDER [None]
  - COMMUNICATION DISORDER [None]
  - DISTURBANCE IN ATTENTION [None]
  - FEAR [None]
  - GLOBAL AMNESIA [None]
  - IMPAIRED WORK ABILITY [None]
  - NEUROPATHY [None]
  - PAIN [None]
  - RENAL TUBULAR DISORDER [None]
  - RHABDOMYOLYSIS [None]
